FAERS Safety Report 10057822 (Version 3)
Quarter: 2014Q2

REPORT INFORMATION
  Report Type: Spontaneous
  Country: FR (occurrence: FR)
  Receive Date: 20140404
  Receipt Date: 20140424
  Transmission Date: 20141212
  Serious: Yes (Death, Life-Threatening, Hospitalization)
  Sender: FDA-Public Use
  Company Number: PHHY2014FR037142

PATIENT
  Age: 70 Year
  Sex: Male
  Weight: 63 kg

DRUGS (5)
  1. AMOXICILLIN+CLAVULANATE SANDOZ [Suspect]
     Route: 042
     Dates: start: 20140316
  2. CELECTOL [Concomitant]
     Indication: PRODUCT USED FOR UNKNOWN INDICATION
     Route: 065
  3. KARDEGIC [Concomitant]
     Indication: PRODUCT USED FOR UNKNOWN INDICATION
     Route: 065
  4. INEXIUM//ESOMEPRAZOLE MAGNESIUM [Concomitant]
     Indication: PRODUCT USED FOR UNKNOWN INDICATION
     Route: 065
  5. TAHOR [Concomitant]
     Indication: PRODUCT USED FOR UNKNOWN INDICATION
     Route: 065

REACTIONS (5)
  - Anaphylactic shock [Fatal]
  - Lactic acidosis [Fatal]
  - Cardiac arrest [Fatal]
  - Hepatitis fulminant [Fatal]
  - Wrong patient received medication [Fatal]
